FAERS Safety Report 9793116 (Version 1)
Quarter: 2014Q1

REPORT INFORMATION
  Report Type: Spontaneous
  Country: US (occurrence: US)
  Receive Date: 20140102
  Receipt Date: 20140102
  Transmission Date: 20141002
  Serious: Yes (Hospitalization)
  Sender: FDA-Public Use
  Company Number: US-PFIZER INC-2013373863

PATIENT
  Age: 42 Year
  Sex: Male
  Weight: 90 kg

DRUGS (6)
  1. TESTOSTERONE CIPIONATE [Suspect]
     Indication: MUSCLE BUILDING THERAPY
     Dosage: UNK
  2. TESTOSTERONE PROPIONATE [Suspect]
     Indication: MUSCLE BUILDING THERAPY
     Dosage: UNK
  3. TESTOSTERONE PHENYLPROPIONATE [Suspect]
     Indication: MUSCLE BUILDING THERAPY
     Dosage: UNK
  4. TESTOSTERONE ENANTATE [Suspect]
     Indication: MUSCLE BUILDING THERAPY
     Dosage: UNK
  5. TESTOSTERONE [Suspect]
     Indication: MUSCLE BUILDING THERAPY
     Dosage: UNK
  6. TESTOSTERONE DECANOATE [Suspect]
     Indication: MUSCLE BUILDING THERAPY
     Dosage: UNK

REACTIONS (3)
  - Multi-organ failure [Unknown]
  - Systemic inflammatory response syndrome [Unknown]
  - Acute respiratory distress syndrome [Unknown]
